FAERS Safety Report 14213201 (Version 4)
Quarter: 2018Q1

REPORT INFORMATION
  Report Type: Report from Study
  Country: None (occurrence: US)
  Receive Date: 20171122
  Receipt Date: 20180305
  Transmission Date: 20180508
  Serious: Yes (Hospitalization)
  Sender: FDA-Public Use
  Company Number: US-ABBVIE-17K-163-2165296-00

PATIENT
  Age: 68 Year
  Sex: Male
  Weight: 73.55 kg

DRUGS (1)
  1. HUMIRA [Suspect]
     Active Substance: ADALIMUMAB
     Indication: PSORIASIS
     Route: 058
     Dates: start: 2017, end: 201710

REACTIONS (5)
  - Impaired healing [Recovering/Resolving]
  - Blood glucose abnormal [Unknown]
  - Blood cholesterol increased [Not Recovered/Not Resolved]
  - Poor peripheral circulation [Recovering/Resolving]
  - Laceration [Recovering/Resolving]

NARRATIVE: CASE EVENT DATE: 201707
